FAERS Safety Report 11468715 (Version 2)
Quarter: 2016Q2

REPORT INFORMATION
  Report Type: Report from Study
  Country: CO (occurrence: CO)
  Receive Date: 20150908
  Receipt Date: 20160415
  Transmission Date: 20160815
  Serious: Yes (Hospitalization)
  Sender: FDA-Public Use
  Company Number: CO-GLAXOSMITHKLINE INC.-CO2015GSK127768

PATIENT
  Age: 34 Year
  Sex: Male
  Weight: 94 kg

DRUGS (7)
  1. ELTROMBOPAG [Suspect]
     Active Substance: ELTROMBOPAG
     Dosage: 75 MG, QD
     Route: 048
     Dates: start: 201506
  2. ELTROMBOPAG [Suspect]
     Active Substance: ELTROMBOPAG
     Dosage: 100 MG, QD
     Route: 048
  3. TRIMETHOPRIM. [Concomitant]
     Active Substance: TRIMETHOPRIM
     Indication: PRODUCT USED FOR UNKNOWN INDICATION
     Route: 048
  4. ELTROMBOPAG [Suspect]
     Active Substance: ELTROMBOPAG
     Dosage: 25 MG, QD
     Route: 048
  5. SANDIMMUN [Concomitant]
     Active Substance: CYCLOSPORINE
     Indication: PRODUCT USED FOR UNKNOWN INDICATION
     Route: 048
     Dates: start: 201506
  6. ACICLOVIR [Concomitant]
     Active Substance: ACYCLOVIR
     Indication: PRODUCT USED FOR UNKNOWN INDICATION
     Route: 048
     Dates: start: 201506
  7. ELTROMBOPAG [Suspect]
     Active Substance: ELTROMBOPAG
     Indication: IMMUNE THROMBOCYTOPENIC PURPURA
     Dosage: 50 MG, BID
     Route: 048
     Dates: start: 20150604

REACTIONS (1)
  - Epistaxis [Recovered/Resolved]
